FAERS Safety Report 6961199-6 (Version None)
Quarter: 2010Q3

REPORT INFORMATION
  Report Type: 
  Country: None (occurrence: None)
  Receive Date: 20100901
  Receipt Date: 20100820
  Transmission Date: 20110219
  Serious: Yes (Death, Other)
  Sender: FDA-Public Use
  Company Number: US-PFIZER INC-2010106129

PATIENT
  Sex: Female
  Weight: 38.549 kg

DRUGS (1)
  1. DETROL LA [Suspect]
     Indication: POLLAKIURIA
     Dosage: UNK, DAILY
     Route: 048

REACTIONS (5)
  - BLOOD POTASSIUM DECREASED [None]
  - DEATH [None]
  - DIARRHOEA [None]
  - POLLAKIURIA [None]
  - VOMITING [None]
